FAERS Safety Report 24138295 (Version 2)
Quarter: 2024Q4

REPORT INFORMATION
  Report Type: Spontaneous
  Country: US (occurrence: US)
  Receive Date: 20240725
  Receipt Date: 20241023
  Transmission Date: 20250114
  Serious: Yes (Death, Other)
  Sender: BRISTOL-MYERS SQUIBB COMPANY
  Company Number: US-BRISTOL-MYERS SQUIBB COMPANY-2024-116990

PATIENT
  Age: 81 Year
  Sex: Male

DRUGS (4)
  1. OPDIVO [Suspect]
     Active Substance: NIVOLUMAB
     Indication: Prostate cancer
     Dosage: 2X 240MG VIALS
     Route: 042
  2. LISINOPRIL [Concomitant]
     Active Substance: LISINOPRIL
     Indication: Product used for unknown indication
  3. POTASSIUM BICARBONATE [Concomitant]
     Active Substance: POTASSIUM BICARBONATE
     Indication: Product used for unknown indication
  4. CITRIC ACID [Concomitant]
     Active Substance: CITRIC ACID MONOHYDRATE
     Indication: Product used for unknown indication

REACTIONS (2)
  - Off label use [Unknown]
  - Death [Fatal]
